FAERS Safety Report 4622638-9 (Version None)
Quarter: 2005Q1

REPORT INFORMATION
  Report Type: 
  Country: None (occurrence: None)
  Receive Date: 20050328
  Receipt Date: 20050328
  Transmission Date: 20050727
  Serious: No
  Sender: FDA-Public Use
  Company Number: None

PATIENT
  Sex: Male

DRUGS (2)
  1. REMERON [Suspect]
     Dosage: 30 MG @ HS PO
     Route: 048
  2. WELLBUTRIN [Suspect]
     Dosage: 300 MG Q DAY

REACTIONS (6)
  - COMMUNICATION DISORDER [None]
  - DIZZINESS [None]
  - FEELING ABNORMAL [None]
  - HEADACHE [None]
  - NAUSEA [None]
  - VISION BLURRED [None]
